FAERS Safety Report 21866283 (Version 1)
Quarter: 2023Q1

REPORT INFORMATION
  Report Type: Spontaneous
  Country: US (occurrence: US)
  Receive Date: 20230116
  Receipt Date: 20230116
  Transmission Date: 20230417
  Serious: No
  Sender: FDA-Public Use
  Company Number: US-BIOGEN-2022BI01148791

PATIENT
  Sex: Female

DRUGS (14)
  1. AVONEX [Suspect]
     Active Substance: INTERFERON BETA-1A
     Indication: Multiple sclerosis
     Route: 050
     Dates: start: 20121112, end: 20190124
  2. AVONEX [Suspect]
     Active Substance: INTERFERON BETA-1A
     Route: 050
  3. AVONEX [Suspect]
     Active Substance: INTERFERON BETA-1A
     Dosage: 1/4 DOSE
     Route: 050
  4. AVONEX [Suspect]
     Active Substance: INTERFERON BETA-1A
     Dosage: 1/2 DOSE
     Route: 050
  5. AVONEX [Suspect]
     Active Substance: INTERFERON BETA-1A
     Dosage: 3/4 DOSE
     Route: 050
  6. AVONEX [Suspect]
     Active Substance: INTERFERON BETA-1A
     Dosage: FULL DOSE
     Route: 050
  7. AVONEX [Suspect]
     Active Substance: INTERFERON BETA-1A
     Route: 050
     Dates: start: 20020301, end: 20050331
  8. AVONEX [Suspect]
     Active Substance: INTERFERON BETA-1A
     Route: 050
     Dates: start: 20220914
  9. AVONEX [Suspect]
     Active Substance: INTERFERON BETA-1A
  10. AVONEX [Suspect]
     Active Substance: INTERFERON BETA-1A
  11. AVONEX [Suspect]
     Active Substance: INTERFERON BETA-1A
  12. AVONEX [Suspect]
     Active Substance: INTERFERON BETA-1A
  13. AVONEX [Suspect]
     Active Substance: INTERFERON BETA-1A
  14. GABAPENTIN [Concomitant]
     Active Substance: GABAPENTIN
     Route: 050

REACTIONS (4)
  - Hypoaesthesia [Not Recovered/Not Resolved]
  - Illness [Recovered/Resolved]
  - Pyrexia [Unknown]
  - Fatigue [Unknown]
